FAERS Safety Report 8733391 (Version 2)
Quarter: 2012Q4

REPORT INFORMATION
  Report Type: 
  Country: US (occurrence: US)
  Receive Date: 20120821
  Receipt Date: 20120925
  Transmission Date: 20130627
  Serious: No
  Sender: FDA-Public Use
  Company Number: US-PFIZER INC-2012203136

PATIENT
  Age: 39 Year
  Sex: Male
  Weight: 87.08 kg

DRUGS (3)
  1. CHANTIX [Suspect]
     Indication: SMOKING CESSATION THERAPY
     Dosage: 0.5 mg, daily
     Dates: start: 20120808, end: 201208
  2. CHANTIX [Suspect]
     Dosage: 1 mg, 2x/day
     Dates: start: 201208, end: 201208
  3. CHANTIX [Suspect]
     Dosage: UNK
     Dates: start: 201208

REACTIONS (5)
  - Feeling abnormal [Not Recovered/Not Resolved]
  - Middle insomnia [Not Recovered/Not Resolved]
  - Somnolence [Not Recovered/Not Resolved]
  - Mood swings [Not Recovered/Not Resolved]
  - Dysgeusia [Not Recovered/Not Resolved]
